FAERS Safety Report 8263843-2 (Version None)
Quarter: 2012Q2

REPORT INFORMATION
  Report Type: 
  Country: None (occurrence: None)
  Receive Date: 20120405
  Receipt Date: 20120403
  Transmission Date: 20120825
  Serious: Yes (Other)
  Sender: FDA-Public Use
  Company Number: GB-MERCK-1204GBR00015

PATIENT
  Age: 78 Year
  Sex: Female

DRUGS (1)
  1. JANUVIA [Suspect]
     Route: 048
     Dates: start: 20080101

REACTIONS (1)
  - CEREBROVASCULAR ACCIDENT [None]
